FAERS Safety Report 23631251 (Version 1)
Quarter: 2024Q1

REPORT INFORMATION
  Report Type: Spontaneous
  Country: US (occurrence: US)
  Receive Date: 20240314
  Receipt Date: 20240314
  Transmission Date: 20240410
  Serious: Yes (Other)
  Sender: FDA-Public Use
  Company Number: US-HIKMA PHARMACEUTICALS USA INC.-US-H14001-23-68181

PATIENT

DRUGS (1)
  1. DESVENLAFAXINE [Suspect]
     Active Substance: DESVENLAFAXINE
     Indication: Depression
     Dosage: 50 MILLIGRAM, QD
     Route: 048
     Dates: start: 202303

REACTIONS (1)
  - Product use issue [Unknown]
